FAERS Safety Report 7660184-9 (Version None)
Quarter: 2011Q3

REPORT INFORMATION
  Report Type: 
  Country: None (occurrence: None)
  Receive Date: 20110805
  Receipt Date: 20110802
  Transmission Date: 20111222
  Serious: Yes (Death, Other)
  Sender: FDA-Public Use
  Company Number: PHHY2011FR69815

PATIENT
  Age: 32 Year
  Sex: Male

DRUGS (8)
  1. BRONCHODILATORS [Concomitant]
     Dosage: UNK
  2. STEROIDS NOS [Concomitant]
     Dosage: UNK
  3. METHYLPREDNISOLONE [Concomitant]
     Dosage: 500 MG, UNK
  4. PREDNISONE [Concomitant]
     Dosage: 1 MG/KG/DAY
  5. MACROLIDES [Concomitant]
     Dosage: UNK
  6. CYCLOSPORINE [Suspect]
     Indication: STEM CELL TRANSPLANT
     Dosage: 50 MG/DAY
  7. RITUXIMAB [Concomitant]
     Dosage: UNK
  8. PREDNISONE [Concomitant]
     Dosage: 25 MG/DAY

REACTIONS (10)
  - LUNG HYPERINFLATION [None]
  - LUNG CONSOLIDATION [None]
  - OBLITERATIVE BRONCHIOLITIS [None]
  - PRODUCTIVE COUGH [None]
  - ACUTE GRAFT VERSUS HOST DISEASE IN SKIN [None]
  - RESPIRATORY DISTRESS [None]
  - DYSPNOEA [None]
  - OBSTRUCTIVE AIRWAYS DISORDER [None]
  - VITAL CAPACITY DECREASED [None]
  - FORCED EXPIRATORY VOLUME DECREASED [None]
